FAERS Safety Report 19441715 (Version 1)
Quarter: 2021Q2

REPORT INFORMATION
  Report Type: Other
  Country: US (occurrence: US)
  Receive Date: 20210621
  Receipt Date: 20210621
  Transmission Date: 20210717
  Serious: Yes (Other)
  Sender: FDA-Public Use
  Company Number: US-INTERCEPT-PM2021001905

PATIENT
  Sex: Female

DRUGS (1)
  1. OCALIVA [Suspect]
     Active Substance: OBETICHOLIC ACID
     Indication: PRIMARY BILIARY CHOLANGITIS
     Dosage: 5 MILLIGRAM, 2X/WK
     Route: 048
     Dates: start: 20161115

REACTIONS (16)
  - Nausea [Unknown]
  - Overlap syndrome [Unknown]
  - Fatigue [Unknown]
  - Chromaturia [Unknown]
  - Chills [Unknown]
  - Confusional state [Unknown]
  - Diarrhoea [Unknown]
  - Ocular icterus [Unknown]
  - Hepatic cirrhosis [Unknown]
  - Yellow skin [Unknown]
  - Sjogren^s syndrome [Unknown]
  - Weight increased [Unknown]
  - Asthenia [Unknown]
  - Dizziness [Unknown]
  - Gastrointestinal disorder [Unknown]
  - Vomiting [Unknown]

NARRATIVE: CASE EVENT DATE: 2021
